FAERS Safety Report 14263997 (Version 11)
Quarter: 2022Q2

REPORT INFORMATION
  Report Type: Spontaneous
  Country: FR (occurrence: FR)
  Receive Date: 20171208
  Receipt Date: 20220526
  Transmission Date: 20220720
  Serious: Yes (Death, Life-Threatening, Other)
  Sender: FDA-Public Use
  Company Number: FR-MYLANLABS-2017M1076769

PATIENT
  Age: 25 Year
  Sex: Female
  Weight: 84 kg

DRUGS (23)
  1. EPINEPHRINE [Suspect]
     Active Substance: EPINEPHRINE
     Indication: Cardiovascular disorder
     Dosage: 8 MG, UNK
     Route: 065
     Dates: start: 20170715
  2. EPINEPHRINE [Suspect]
     Active Substance: EPINEPHRINE
     Indication: Adverse event
  3. AMIODARONE [Suspect]
     Active Substance: AMIODARONE
     Indication: Adverse event
     Dosage: 600 MILLIGRAM, QD
     Route: 065
     Dates: start: 20170715
  4. DOBUTAMINE [Suspect]
     Active Substance: DOBUTAMINE HYDROCHLORIDE
     Indication: Cardiovascular disorder
     Dosage: UP TO 1.5MG / KG
     Route: 065
     Dates: start: 201707, end: 201707
  5. DOBUTAMINE [Suspect]
     Active Substance: DOBUTAMINE HYDROCHLORIDE
     Indication: Adverse event
     Dosage: 7.5 GAMMA/KG/MIN
     Route: 065
  6. DOBUTAMINE [Suspect]
     Active Substance: DOBUTAMINE HYDROCHLORIDE
     Dosage: UNK
     Route: 065
  7. NOREPINEPHRINE [Suspect]
     Active Substance: NOREPINEPHRINE
     Indication: Cardiovascular disorder
     Dosage: UNK UNK, QH (UP TO 14 MG/H)
     Route: 065
     Dates: start: 20170715
  8. NOREPINEPHRINE [Suspect]
     Active Substance: NOREPINEPHRINE
     Indication: Adverse event
     Dosage: 1.5 MILLIGRAM/KILOGRAM
     Route: 065
  9. METHYLPREDNISOLONE [Suspect]
     Active Substance: METHYLPREDNISOLONE
     Indication: Adverse event
     Dosage: UNK
  10. DEXTROSE [Suspect]
     Active Substance: DEXTROSE
     Indication: Medication dilution
     Dosage: 500 MILLILITER, QD
     Route: 065
     Dates: start: 20170715
  11. DEXTROSE [Suspect]
     Active Substance: DEXTROSE
     Dosage: 250 MILLILITER, QD
     Route: 065
     Dates: start: 20170715
  12. SODIUM BICARBONATE [Suspect]
     Active Substance: SODIUM BICARBONATE
     Indication: Haemofiltration
     Dosage: 8.4 PERCENT MOLAR VIALS
     Route: 065
     Dates: start: 20170715
  13. SODIUM BICARBONATE [Suspect]
     Active Substance: SODIUM BICARBONATE
     Indication: Adverse event
     Dosage: 8.4 PERCENT MOLAR VIALS
     Route: 065
  14. SODIUM CHLORIDE [Suspect]
     Active Substance: SODIUM CHLORIDE
     Indication: Haemofiltration
     Dosage: UNK
     Route: 065
  15. RASBURICASE [Suspect]
     Active Substance: RASBURICASE
     Indication: Prophylaxis
     Dosage: 1 DOSAGE FORM
     Route: 065
     Dates: start: 20170708
  16. INSULIN NOS [Suspect]
     Active Substance: INSULIN NOS
     Indication: Adverse event
     Dosage: 60 INTERNATIONAL UNIT, QD
     Route: 065
     Dates: start: 20170715
  17. INSULIN NOS [Suspect]
     Active Substance: INSULIN NOS
     Dosage: 30 INTERNATIONAL UNIT, QD
     Route: 065
     Dates: start: 20170715
  18. CALCIUM CL\MAGNESIUM CL\POTASSIUM CL\SODIUM BICAR\SODIUM CL\SODIUM PHO [Suspect]
     Active Substance: CALCIUM CL\MAGNESIUM CL\POTASSIUM CL\SODIUM BICAR\SODIUM CL\SODIUM PHOSPHATE,DIB
     Indication: Haemofiltration
     Dosage: 3 LITER, QH (72 LITERS/DAY)
     Route: 010
     Dates: start: 20170715
  19. POTASSIUM CHLORIDE [Suspect]
     Active Substance: POTASSIUM CHLORIDE
     Indication: Tumour lysis syndrome
     Dosage: 5 G, CYCLE, ADDED IN PRE DILUTION BAG, FLOW WAS 1LITER PER HOUR
     Route: 042
     Dates: start: 20170715, end: 20170715
  20. CALCIUM CL\DEXTROSE\LACTIC ACID\MAGNESIUM CL\POTASSIUM CL\SODIUM BICAR [Suspect]
     Active Substance: CALCIUM CL\DEXTROSE\LACTIC ACID\MAGNESIUM CL\POTASSIUM CL\SODIUM BICAR\SODIUM CL
     Indication: Haemofiltration
     Dosage: 3 L, QH, 72 LITERS/DAY IN TOTAL
     Route: 042
     Dates: start: 20170715, end: 20170715
  21. POTASSIUM CHLORIDE\SODIUM CHLORIDE [Suspect]
     Active Substance: POTASSIUM CHLORIDE\SODIUM CHLORIDE
     Indication: Tumour lysis syndrome
     Dosage: 5 GRAM, CYCLE
     Route: 042
     Dates: start: 20170715, end: 20170715
  22. PIPERACILLIN SODIUM\TAZOBACTAM SODIUM [Concomitant]
     Active Substance: PIPERACILLIN SODIUM\TAZOBACTAM SODIUM
     Indication: Product used for unknown indication
     Dosage: UNK
     Route: 065
  23. HEPARIN SODIUM [Concomitant]
     Active Substance: HEPARIN SODIUM
     Indication: Product used for unknown indication
     Dosage: UNK
     Route: 065

REACTIONS (14)
  - Cardio-respiratory arrest [Fatal]
  - Blood phosphorus increased [Fatal]
  - Nervous system disorder [Fatal]
  - Cerebral haematoma [Fatal]
  - Cardiovascular insufficiency [Fatal]
  - Cerebrovascular accident [Fatal]
  - Malaise [Fatal]
  - General physical health deterioration [Fatal]
  - Hyperkalaemia [Fatal]
  - Renal failure [Fatal]
  - Tumour lysis syndrome [Fatal]
  - Ventricular fibrillation [Fatal]
  - Incorrect dose administered [Fatal]
  - Respiratory failure [Fatal]

NARRATIVE: CASE EVENT DATE: 20170715
